FAERS Safety Report 6969156-0 (Version None)
Quarter: 2010Q3

REPORT INFORMATION
  Report Type: 
  Country: None (occurrence: None)
  Receive Date: 20100907
  Receipt Date: 20100825
  Transmission Date: 20110219
  Serious: Yes (Other)
  Sender: FDA-Public Use
  Company Number: PHHY2009BE48606

PATIENT
  Age: 82 Year
  Sex: Male

DRUGS (1)
  1. ZOMETA [Suspect]
     Indication: PROSTATE CANCER METASTATIC

REACTIONS (12)
  - BONE DISORDER [None]
  - BONE EROSION [None]
  - BONE LESION [None]
  - EXCESSIVE GRANULATION TISSUE [None]
  - GLOSSODYNIA [None]
  - ORAL DISCOMFORT [None]
  - ORAL DISORDER [None]
  - OSTEONECROSIS OF JAW [None]
  - OSTEORADIONECROSIS [None]
  - PROSTATIC SPECIFIC ANTIGEN INCREASED [None]
  - SKIN FLAP NECROSIS [None]
  - TOOTH EXTRACTION [None]
